FAERS Safety Report 13194236 (Version 1)
Quarter: 2017Q1

REPORT INFORMATION
  Report Type: Spontaneous
  Country: CH (occurrence: CH)
  Receive Date: 20170207
  Receipt Date: 20170207
  Transmission Date: 20170428
  Serious: Yes (Other)
  Sender: FDA-Public Use
  Company Number: CH-UNITED THERAPEUTICS-UNT-2017-001452

PATIENT
  Age: 46 Year
  Sex: Female

DRUGS (1)
  1. REMODULIN [Suspect]
     Active Substance: TREPROSTINIL
     Indication: PRODUCT USED FOR UNKNOWN INDICATION
     Dosage: 0.045 ?G/KG, CONTINUING
     Route: 041
     Dates: start: 20150616

REACTIONS (2)
  - Cerebrovascular accident [Unknown]
  - Product use issue [Unknown]

NARRATIVE: CASE EVENT DATE: 20170130
